FAERS Safety Report 8407385-X (Version None)
Quarter: 2012Q2

REPORT INFORMATION
  Report Type: 
  Country: None (occurrence: None)
  Receive Date: 20120604
  Receipt Date: 20120524
  Transmission Date: 20120825
  Serious: Yes (Hospitalization, Other)
  Sender: FDA-Public Use
  Company Number: US-ASTRAZENECA-2011SE50182

PATIENT
  Age: 83 Year
  Sex: Female

DRUGS (2)
  1. NEXIUM [Suspect]
     Dosage: ONCE A DAY.
     Route: 048
  2. NEXIUM [Suspect]
     Dosage: TWICE A DAY.
     Route: 048

REACTIONS (13)
  - FALL [None]
  - RENAL CYST [None]
  - RENAL CANCER [None]
  - ADVERSE EVENT [None]
  - VOMITING [None]
  - MALAISE [None]
  - COUGH [None]
  - INTENTIONAL DRUG MISUSE [None]
  - ASTHMA [None]
  - GASTROOESOPHAGEAL REFLUX DISEASE [None]
  - UPPER LIMB FRACTURE [None]
  - FATIGUE [None]
  - HIATUS HERNIA [None]
